FAERS Safety Report 7356667-1 (Version None)
Quarter: 2011Q1

REPORT INFORMATION
  Report Type: 
  Country: None (occurrence: None)
  Receive Date: 20110316
  Receipt Date: 20110310
  Transmission Date: 20110831
  Serious: Yes (Death, Other)
  Sender: FDA-Public Use
  Company Number: PHHY2011HK19793

PATIENT
  Age: 11 Year
  Sex: Male

DRUGS (5)
  1. METHOTREXATE [Suspect]
  2. CYTARABINE [Suspect]
  3. CISPLATIN [Suspect]
  4. ASPARAGINASE [Suspect]
  5. VINCRISTINE [Suspect]

REACTIONS (7)
  - CEREBROVASCULAR DISORDER [None]
  - CONVULSION [None]
  - REFRACTORY CANCER [None]
  - POSTERIOR REVERSIBLE ENCEPHALOPATHY SYNDROME [None]
  - MENTAL IMPAIRMENT [None]
  - BLOOD PRESSURE INCREASED [None]
  - VISUAL IMPAIRMENT [None]
